FAERS Safety Report 6407911-6 (Version None)
Quarter: 2009Q4

REPORT INFORMATION
  Report Type: 
  Country: None (occurrence: None)
  Receive Date: 20091016
  Receipt Date: 20091006
  Transmission Date: 20100525
  Serious: Yes (Hospitalization)
  Sender: FDA-Public Use
  Company Number: FABR-1001026

PATIENT
  Age: 49 Year
  Sex: Male

DRUGS (1)
  1. FABRAZYME [Suspect]
     Indication: FABRY'S DISEASE
     Dosage: UNK, UNK, UNK, INTRAVENEOUS
     Route: 042
     Dates: start: 20010610

REACTIONS (3)
  - ARTHROPOD BITE [None]
  - HYPOAESTHESIA [None]
  - INFLUENZA [None]
